FAERS Safety Report 9787876 (Version 1)
Quarter: 2013Q4

REPORT INFORMATION
  Report Type: Spontaneous
  Country: US (occurrence: US)
  Receive Date: 20131230
  Receipt Date: 20131230
  Transmission Date: 20140711
  Serious: Yes (Other)
  Sender: FDA-Public Use
  Company Number: US-BAYER-2013-158507

PATIENT
  Sex: Female

DRUGS (1)
  1. MIRENA [Suspect]
     Dosage: DAILY DOSE 20 ?G
     Route: 015

REACTIONS (6)
  - Pregnancy with contraceptive device [None]
  - Nausea [None]
  - Breast tenderness [None]
  - Drug ineffective [None]
  - Abortion spontaneous [None]
  - Adverse event [None]
